FAERS Safety Report 11611864 (Version 1)
Quarter: 2015Q4

REPORT INFORMATION
  Report Type: Spontaneous
  Country: GB (occurrence: GB)
  Receive Date: 20151008
  Receipt Date: 20151008
  Transmission Date: 20160304
  Serious: Yes (Disabling)
  Sender: FDA-Public Use
  Company Number: GB-PFIZER INC-2015309485

PATIENT
  Age: 63 Year
  Sex: Female
  Weight: 55 kg

DRUGS (3)
  1. SIMVASTATIN. [Concomitant]
     Active Substance: SIMVASTATIN
     Indication: HYPERCHOLESTEROLAEMIA
     Dosage: 40 MG, AT NIGHT
     Route: 048
     Dates: start: 2012
  2. LYRICA [Suspect]
     Active Substance: PREGABALIN
     Indication: NEURALGIA
     Dosage: 200 MG, DAILY
     Route: 048
     Dates: start: 201501, end: 201509
  3. IRBESARTAN. [Concomitant]
     Active Substance: IRBESARTAN
     Indication: CHRONIC KIDNEY DISEASE
     Dosage: 75 MG, DAILY
     Route: 048
     Dates: start: 2012

REACTIONS (6)
  - Hypoaesthesia [Not Recovered/Not Resolved]
  - Tinnitus [Not Recovered/Not Resolved]
  - Gait disturbance [Not Recovered/Not Resolved]
  - Nausea [Not Recovered/Not Resolved]
  - Rhinorrhoea [Not Recovered/Not Resolved]
  - Visual impairment [Not Recovered/Not Resolved]
